FAERS Safety Report 21665256 (Version 1)
Quarter: 2022Q4

REPORT INFORMATION
  Report Type: Spontaneous
  Country: MY (occurrence: MY)
  Receive Date: 20221201
  Receipt Date: 20221201
  Transmission Date: 20230113
  Serious: Yes (Other)
  Sender: FDA-Public Use
  Company Number: MY-PFIZER INC-PV202200111176

PATIENT
  Age: 61 Year
  Sex: Male

DRUGS (6)
  1. LORLATINIB [Suspect]
     Active Substance: LORLATINIB
     Dosage: 100 MG, 1X/DAY
     Dates: start: 20180928
  2. LORLATINIB [Suspect]
     Active Substance: LORLATINIB
     Dosage: 75 MG, 1X/DAY
     Dates: start: 201811
  3. LORLATINIB [Suspect]
     Active Substance: LORLATINIB
     Dosage: 50 MG, 1X/DAY
     Dates: start: 201812
  4. TENOFOVIR [Concomitant]
     Active Substance: TENOFOVIR
     Indication: Viral hepatitis carrier
  5. PERINDOPRIL [Concomitant]
     Active Substance: PERINDOPRIL
     Dosage: 8 MG, 1X/DAY
  6. LERCANIDIPINE [Concomitant]
     Active Substance: LERCANIDIPINE
     Dosage: 20 MG, 1X/DAY

REACTIONS (11)
  - Hypertension [Recovered/Resolved]
  - IgA nephropathy [Unknown]
  - Renal impairment [Unknown]
  - Angina unstable [Unknown]
  - Peripheral swelling [Not Recovered/Not Resolved]
  - Mood altered [Unknown]
  - Muscle strain [Unknown]
  - Hypoaesthesia [Unknown]
  - Blood albumin decreased [Unknown]
  - Proteinuria [Not Recovered/Not Resolved]
  - Haematuria [Not Recovered/Not Resolved]

NARRATIVE: CASE EVENT DATE: 20181101
